FAERS Safety Report 6847592-0 (Version None)
Quarter: 2010Q3

REPORT INFORMATION
  Report Type: 
  Country: None (occurrence: None)
  Receive Date: 20100714
  Receipt Date: 20100628
  Transmission Date: 20110219
  Serious: Yes (Hospitalization, Other)
  Sender: FDA-Public Use
  Company Number: NSR_00103_2010

PATIENT
  Age: 56 Year
  Sex: Male

DRUGS (4)
  1. METOCLOPRAMIDE [Suspect]
     Indication: POSTOPERATIVE ILEUS
     Dosage: (20 MG 1X6 HOURS INTRAVENOUS (NOT OTHERWISE SPECIFIED) )
     Route: 042
  2. DIGOXIN [Suspect]
     Indication: ATRIAL FIBRILLATION
     Dosage: DF
  3. AMIODARONE HCL [Concomitant]
  4. DILTIAZEM [Concomitant]

REACTIONS (5)
  - ATRIAL FIBRILLATION [None]
  - BRADYCARDIA [None]
  - CARDIAC ARREST [None]
  - NODAL RHYTHM [None]
  - SINUS TACHYCARDIA [None]
